FAERS Safety Report 4436383-6 (Version None)
Quarter: 2004Q3

REPORT INFORMATION
  Report Type: 
  Country: None (occurrence: None)
  Receive Date: 20040830
  Receipt Date: 20040423
  Transmission Date: 20050211
  Serious: No
  Sender: FDA-Public Use
  Company Number: US-BRISTOL-MYERS SQUIBB COMPANY-12569737

PATIENT
  Age: 12 Year
  Sex: Female

DRUGS (3)
  1. ABILIFY [Suspect]
     Indication: AFFECTIVE DISORDER
     Dosage: 2.5 MG IN AM AND 5 MG IN PM
     Route: 048
     Dates: start: 20040324
  2. DEPAKOTE [Suspect]
     Dosage: CHRONIC USE
  3. SEROQUEL [Suspect]
     Dosage: 200 MG AND 400 MG
     Dates: start: 20031023

REACTIONS (1)
  - HYPERGLYCAEMIA [None]
